FAERS Safety Report 7790923-8 (Version None)
Quarter: 2011Q3

REPORT INFORMATION
  Report Type: 
  Country: None (occurrence: None)
  Receive Date: 20110930
  Receipt Date: 20110930
  Transmission Date: 20111222
  Serious: Yes (Other)
  Sender: FDA-Public Use
  Company Number: None

PATIENT
  Age: 53 Year
  Sex: Male
  Weight: 90.718 kg

DRUGS (1)
  1. LEVULAN [Suspect]
     Indication: PRECANCEROUS SKIN LESION
     Dates: start: 20110920, end: 20110920

REACTIONS (5)
  - PAIN [None]
  - SKIN EXFOLIATION [None]
  - EPISTAXIS [None]
  - SKIN BURNING SENSATION [None]
  - TEMPERATURE INTOLERANCE [None]
